FAERS Safety Report 16162906 (Version 1)
Quarter: 2019Q2

REPORT INFORMATION
  Report Type: Spontaneous
  Country: IT (occurrence: IT)
  Receive Date: 20190405
  Receipt Date: 20190405
  Transmission Date: 20190711
  Serious: Yes (Hospitalization)
  Sender: FDA-Public Use
  Company Number: IT-ACCORD-118234

PATIENT
  Age: 12 Year
  Sex: Female

DRUGS (3)
  1. CISPLATIN ACCORD HEALTHCARE [Concomitant]
     Active Substance: CISPLATIN
     Indication: OVARIAN DYSGERMINOMA STAGE II
     Route: 042
     Dates: start: 20190108, end: 20190201
  2. ETOPOSIDE ACCORD [Suspect]
     Active Substance: ETOPOSIDE
     Indication: OVARIAN DYSGERMINOMA STAGE II
     Dosage: STRENGTH 20 MG/ML
     Route: 042
     Dates: start: 20190108, end: 20190201
  3. BLEOPRIM [Concomitant]
     Active Substance: BLEOMYCIN SULFATE
     Route: 042
     Dates: start: 20190108, end: 20190201

REACTIONS (4)
  - Eyelid oedema [Recovered/Resolved]
  - Throat tightness [Recovered/Resolved]
  - Flushing [Recovered/Resolved]
  - Off label use [Unknown]

NARRATIVE: CASE EVENT DATE: 20190131
